FAERS Safety Report 7116712-5 (Version None)
Quarter: 2010Q4

REPORT INFORMATION
  Report Type: 
  Country: None (occurrence: None)
  Receive Date: 20101122
  Receipt Date: 20101109
  Transmission Date: 20110411
  Serious: Yes (Other)
  Sender: FDA-Public Use
  Company Number: PHHY2010BR76202

PATIENT
  Sex: Male
  Weight: 22.5 kg

DRUGS (2)
  1. RITALIN [Suspect]
     Dosage: 0.5 DF, QD
     Dates: start: 20100801
  2. RITALIN [Suspect]
     Dosage: 1 DF, QD

REACTIONS (1)
  - CONSTIPATION [None]
